FAERS Safety Report 10362926 (Version 1)
Quarter: 2014Q1

REPORT INFORMATION
  Report Type: Spontaneous
  Country: US (occurrence: None)
  Receive Date: 20140306
  Receipt Date: 20140306
  Transmission Date: 20141002
  Serious: Yes (Other)
  Sender: FDA-Public Use
  Company Number: 163-21880-13022008

PATIENT
  Sex: Male
  Weight: 104.33 kg

DRUGS (15)
  1. REVLIMID (LENALIDOMIDE) (CAPSULES) [Suspect]
     Indication: PLASMA CELL MYELOMA
     Route: 048
     Dates: start: 200910
  2. AMIODARONE HCL (AMIODARONE HYDROCHLORIDE) (UNKNOWN) [Concomitant]
  3. ASPIRIN (ACETYLSALICYLIC ACID) (TABLETS) [Concomitant]
  4. BIAXIN (CLARITHROMYCIN) (TABLETS) [Concomitant]
  5. CIALIS (TADALAFIL) (TABLETS) [Concomitant]
  6. DEXAMETHASONE (UNKNOWN) [Concomitant]
  7. DILTIAZEM CD (DILTIAZEM HYDROCHLORIDE) (UNKNOWN) [Concomitant]
  8. HYDROCORTISONE (UNKNOWN) [Concomitant]
  9. LANTUS (INSULIN GLARGINE) (UNKNOWN) [Concomitant]
  10. LIPITOR (ATORVASTATIN) (TABLETS) [Concomitant]
  11. METOPROLOL SUCCINATE (METOPROLOL SUCCINATE) (UNKNOWN) [Concomitant]
  12. MULTIVITAMINS (TABLETS) [Concomitant]
  13. NITROSTAT (GLYCERYL TRINITRATE) (TABLETS) [Concomitant]
  14. SINGULAIR (MONTELUKAST SODIUM) (UNKNOWN) [Concomitant]
  15. SPIRONOLACTONE (UNKNOWN) [Concomitant]

REACTIONS (2)
  - Haemorrhagic diathesis [None]
  - Increased tendency to bruise [None]
